FAERS Safety Report 7638586-6 (Version None)
Quarter: 2011Q3

REPORT INFORMATION
  Report Type: 
  Country: None (occurrence: None)
  Receive Date: 20110727
  Receipt Date: 20110719
  Transmission Date: 20111222
  Serious: Yes (Hospitalization, Other)
  Sender: FDA-Public Use
  Company Number: US-ASTELLAS-2011US004100

PATIENT
  Age: 49 Year
  Sex: Male

DRUGS (1)
  1. AMEVIVE [Suspect]
     Indication: RENAL TRANSPLANT
     Dosage: 15 MG, WEEKLY
     Route: 058
     Dates: start: 20101220, end: 20110301

REACTIONS (4)
  - CHILLS [None]
  - KIDNEY TRANSPLANT REJECTION [None]
  - DIARRHOEA [None]
  - PAIN [None]
